FAERS Safety Report 20056646 (Version 1)
Quarter: 2021Q4

REPORT INFORMATION
  Report Type: Spontaneous
  Country: FR (occurrence: FR)
  Receive Date: 20211111
  Receipt Date: 20211111
  Transmission Date: 20220304
  Serious: Yes (Hospitalization)
  Sender: FDA-Public Use
  Company Number: FR-AUROBINDO-AUR-APL-2021-045421

PATIENT
  Age: 8 Year
  Sex: Male
  Weight: 25 kg

DRUGS (2)
  1. ZOPICLONE [Suspect]
     Active Substance: ZOPICLONE
     Indication: Product administration error
     Dosage: 7.5 MILLIGRAM
     Route: 048
     Dates: start: 20210913, end: 20210913
  2. MELATONIN [Suspect]
     Active Substance: MELATONIN
     Indication: Product used for unknown indication
     Dosage: NON ADMINISTR???
     Route: 065

REACTIONS (4)
  - Dysarthria [Recovered/Resolved]
  - Somnolence [Recovered/Resolved]
  - Wrong drug [Recovered/Resolved]
  - Product administration error [Recovered/Resolved]

NARRATIVE: CASE EVENT DATE: 20210913
